FAERS Safety Report 7930948-2 (Version None)
Quarter: 2011Q4

REPORT INFORMATION
  Report Type: 
  Country: None (occurrence: None)
  Receive Date: 20111121
  Receipt Date: 20111118
  Transmission Date: 20120403
  Serious: No
  Sender: FDA-Public Use
  Company Number: US-PFIZER INC-2011283293

PATIENT
  Sex: Female
  Weight: 52.2 kg

DRUGS (7)
  1. ADVIL COLD AND SINUS [Suspect]
     Indication: RHINORRHOEA
  2. ADVIL COLD AND SINUS [Suspect]
     Indication: HEADACHE
     Dosage: UNK, 2X/DAY
     Route: 048
     Dates: start: 20111110, end: 20111117
  3. ADVIL COLD AND SINUS [Suspect]
     Indication: NASOPHARYNGITIS
  4. ADVIL COLD AND SINUS [Suspect]
     Indication: COUGH
  5. ADVIL COLD AND SINUS [Suspect]
     Indication: SINUS CONGESTION
  6. ASCORBIC ACID [Concomitant]
     Dosage: UNK
  7. ADVIL COLD AND SINUS [Suspect]
     Indication: SNEEZING

REACTIONS (1)
  - DRUG INEFFECTIVE [None]
